FAERS Safety Report 6523623-2 (Version None)
Quarter: 2009Q4

REPORT INFORMATION
  Report Type: 
  Country: None (occurrence: None)
  Receive Date: 20091231
  Receipt Date: 20091225
  Transmission Date: 20100525
  Serious: Yes (Death, Other)
  Sender: FDA-Public Use
  Company Number: PHBS2007JP18067

PATIENT
  Age: 62 Year
  Sex: Male

DRUGS (2)
  1. AREDIA [Suspect]
     Indication: HYPERCALCAEMIA
     Dosage: UNK, UNK
     Route: 042
  2. ANTI-CANCER DRUGS [Concomitant]

REACTIONS (7)
  - BONE DEBRIDEMENT [None]
  - BONE DISORDER [None]
  - JAW OPERATION [None]
  - LUNG NEOPLASM MALIGNANT [None]
  - OSTEONECROSIS [None]
  - PAIN IN JAW [None]
  - SURGERY [None]
